FAERS Safety Report 9780600 (Version 1)
Quarter: 2013Q4

REPORT INFORMATION
  Report Type: Spontaneous
  Country: FR (occurrence: FR)
  Receive Date: 20131224
  Receipt Date: 20131224
  Transmission Date: 20140711
  Serious: Yes (Hospitalization)
  Sender: FDA-Public Use
  Company Number: FR-ASTRAZENECA-2013SE91394

PATIENT
  Age: 16043 Day
  Sex: Female

DRUGS (8)
  1. XEROQUEL [Suspect]
     Indication: BIPOLAR DISORDER
     Route: 048
     Dates: end: 201303
  2. LYRICA [Concomitant]
     Indication: ANXIETY DISORDER
  3. ZOLPIDEM [Concomitant]
     Route: 048
  4. THERALENE [Concomitant]
     Indication: INSOMNIA
     Route: 048
  5. CRESTOR [Concomitant]
     Indication: HYPERCHOLESTEROLAEMIA
     Route: 048
  6. MAGNE B6 [Concomitant]
     Route: 048
  7. TEMESTA [Concomitant]
     Indication: ANXIETY
  8. MONOCRIXO [Concomitant]
     Indication: PAIN
     Route: 048

REACTIONS (2)
  - Intestinal obstruction [Recovered/Resolved]
  - Constipation [Recovered/Resolved]
